FAERS Safety Report 8042956-4 (Version None)
Quarter: 2012Q1

REPORT INFORMATION
  Report Type: 
  Country: None (occurrence: None)
  Receive Date: 20120112
  Receipt Date: 20120109
  Transmission Date: 20120608
  Serious: Yes (Life-Threatening, Hospitalization)
  Sender: FDA-Public Use
  Company Number: US-BAYER-2012-003277

PATIENT
  Sex: Female

DRUGS (1)
  1. AVELOX [Suspect]
     Indication: INFECTION
     Dosage: UNK
     Route: 048
     Dates: start: 20120106, end: 20120101

REACTIONS (4)
  - ANAPHYLACTIC REACTION [None]
  - LIP SWELLING [None]
  - PHARYNGEAL OEDEMA [None]
  - URTICARIA [None]
